FAERS Safety Report 4806416-3 (Version None)
Quarter: 2005Q4

REPORT INFORMATION
  Report Type: 
  Country: None (occurrence: None)
  Receive Date: 20051021
  Receipt Date: 20050801
  Transmission Date: 20060501
  Serious: Yes (Other)
  Sender: FDA-Public Use
  Company Number: PHEH2005US08480

PATIENT
  Age: 65 Year
  Sex: Female

DRUGS (9)
  1. ZOMETA [Suspect]
     Indication: BREAST CANCER METASTATIC
     Dosage: 1500 MG BID FOR 2 WEEKS 1 WEEK OFF
     Dates: end: 20050428
  2. ZOMETA [Suspect]
     Dosage: 4 MG Q4WEEKS
     Dates: start: 20011208, end: 20041012
  3. XELODA [Concomitant]
  4. HERCEPTIN [Concomitant]
  5. TYLENOL (CAPLET) [Concomitant]
  6. ATENOLOL [Concomitant]
  7. DIGITEK [Concomitant]
  8. FLUCONAZOLE [Concomitant]
  9. NEURONTIN [Concomitant]

REACTIONS (14)
  - BONE DISORDER [None]
  - DENTAL CARE [None]
  - DRY MOUTH [None]
  - GINGIVAL BLEEDING [None]
  - JAW DISORDER [None]
  - MOUTH ULCERATION [None]
  - NEUROPATHY PERIPHERAL [None]
  - ORAL SOFT TISSUE DISORDER [None]
  - OSTEONECROSIS [None]
  - PALATAL DISORDER [None]
  - SINUS DISORDER [None]
  - SOFT TISSUE INFLAMMATION [None]
  - SWELLING [None]
  - VASCULITIS [None]
